FAERS Safety Report 21346325 (Version 1)
Quarter: 2022Q3

REPORT INFORMATION
  Report Type: Report from Study
  Country: US (occurrence: US)
  Receive Date: 20220917
  Receipt Date: 20220917
  Transmission Date: 20221027
  Serious: No
  Sender: FDA-Public Use
  Company Number: US-NOVARTISTESTPH-NVSC2022US206190

PATIENT
  Sex: Female

DRUGS (2)
  1. ENTRESTO [Suspect]
     Active Substance: SACUBITRIL\VALSARTAN
     Indication: Product used for unknown indication
     Dosage: 1 DOSAGE FORM, BID
     Route: 048
  2. LASIX [Concomitant]
     Active Substance: FUROSEMIDE
     Indication: Product used for unknown indication
     Dosage: 40 MG, BID
     Route: 065

REACTIONS (10)
  - Fluid retention [Unknown]
  - Pain in extremity [Unknown]
  - Erythema [Unknown]
  - Joint swelling [Unknown]
  - Oedema [Unknown]
  - Swollen tongue [Unknown]
  - Chronic cheek biting [Unknown]
  - Peripheral swelling [Unknown]
  - Headache [Unknown]
  - Rash [Unknown]
